FAERS Safety Report 6756100-4 (Version None)
Quarter: 2010Q2

REPORT INFORMATION
  Report Type: 
  Country: None (occurrence: None)
  Receive Date: 20100604
  Receipt Date: 20100528
  Transmission Date: 20101027
  Serious: Yes (Other)
  Sender: FDA-Public Use
  Company Number: US-SANOFI-AVENTIS-2010SA022513

PATIENT
  Age: 85 Year
  Sex: Male
  Weight: 96.16 kg

DRUGS (5)
  1. LANTUS [Suspect]
     Indication: TYPE 2 DIABETES MELLITUS
     Dosage: DOSE:20 UNIT(S)
     Route: 058
     Dates: start: 20060101
  2. OPTICLICK [Suspect]
  3. NOVOLOG [Concomitant]
  4. CARDIAC THERAPY [Concomitant]
  5. ALL OTHER THERAPEUTIC PRODUCTS [Concomitant]

REACTIONS (3)
  - MACULAR DEGENERATION [None]
  - PERITONEAL DIALYSIS [None]
  - VISUAL IMPAIRMENT [None]
